FAERS Safety Report 12124729 (Version 1)
Quarter: 2016Q1

REPORT INFORMATION
  Report Type: Spontaneous
  Country: US (occurrence: None)
  Receive Date: 20160226
  Receipt Date: 20160226
  Transmission Date: 20160526
  Serious: Yes (Life-Threatening, Hospitalization)
  Sender: FDA-Public Use
  Company Number: None

PATIENT
  Age: 67 Year
  Sex: Male
  Weight: 71.2 kg

DRUGS (1)
  1. HEPARIN [Suspect]
     Active Substance: HEPARIN SODIUM
     Indication: THROMBOSIS PROPHYLAXIS
     Dates: start: 20150926, end: 20151001

REACTIONS (8)
  - Heparin-induced thrombocytopenia [None]
  - PCO2 increased [None]
  - Blood bicarbonate increased [None]
  - Blood urea increased [None]
  - Oxygen saturation decreased [None]
  - Red blood cell count decreased [None]
  - PO2 decreased [None]
  - Blood creatinine increased [None]

NARRATIVE: CASE EVENT DATE: 20151001
